FAERS Safety Report 11563419 (Version 1)
Quarter: 2015Q3

REPORT INFORMATION
  Report Type: Spontaneous
  Country: US (occurrence: US)
  Receive Date: 20150916
  Receipt Date: 20150916
  Transmission Date: 20151125
  Serious: No
  Sender: FDA-Public Use
  Company Number: US-ELI_LILLY_AND_COMPANY-US200901005361

PATIENT
  Age: 66 Year
  Sex: Female

DRUGS (25)
  1. REGLAN [Concomitant]
     Active Substance: METOCLOPRAMIDE HYDROCHLORIDE
     Dosage: 10 MG, AS NEEDED
  2. ACIPHEX [Concomitant]
     Active Substance: RABEPRAZOLE SODIUM
     Dosage: 20 MG, DAILY (1/D)
  3. PANCREASE MT [Concomitant]
     Active Substance: PANCRELIPASE
     Dosage: 2 D/F, WITH EACH MEAL
  4. MAXAIR [Concomitant]
     Active Substance: PIRBUTEROL ACETATE
     Dosage: 14G/0.2MG 2 PUFFS EVERY 4 TO SIX HOURS
  5. FORTEO [Suspect]
     Active Substance: TERIPARATIDE
     Indication: OSTEOPOROSIS
     Dosage: 20 UG, DAILY (1/D)
     Dates: start: 20081217
  6. SINGULAIR [Concomitant]
     Active Substance: MONTELUKAST SODIUM
     Dosage: 10 MG, DAILY (1/D)
  7. CETIRIZINE [Concomitant]
     Active Substance: CETIRIZINE HYDROCHLORIDE
     Dosage: 10 MG, DAILY (1/D)
  8. GLUCOSAMINE [Concomitant]
     Active Substance: GLUCOSAMINE
     Dosage: 1000 MG, DAILY (1/D)
  9. PERCOCET [Concomitant]
     Active Substance: ACETAMINOPHEN\OXYCODONE HYDROCHLORIDE
     Dosage: 5 MG/ 325 MG; 6 D/F, DAILY (1/D)
  10. ADVAIR HFA [Concomitant]
     Active Substance: FLUTICASONE PROPIONATE\SALMETEROL XINAFOATE
     Dosage: 230 MCG/ 21 MCG 2 D/F, PUFFS 2/D
  11. MAGNESIUM [Concomitant]
     Active Substance: MAGNESIUM
     Dosage: 400 MG, DAILY (1/D)
  12. SENNOSIDE [Concomitant]
     Active Substance: SENNOSIDES
     Dosage: 1 D/F, DAILY (1/D)
  13. BACLOFEN. [Concomitant]
     Active Substance: BACLOFEN
     Dosage: 5 MG, 3/D
  14. DOCUSATE SODIUM. [Concomitant]
     Active Substance: DOCUSATE SODIUM
     Dosage: 100 MG, DAILY (1/D)
  15. CALCIUM CITRATE [Concomitant]
     Active Substance: CALCIUM CITRATE
     Dosage: 1200 MG, DAILY (1/D)
  16. PRANDIN /USA/ [Concomitant]
     Dosage: 5 TO 10 MG GIVEN 30 MIN BEFORE EACH MEAL
  17. AMBIEN [Concomitant]
     Active Substance: ZOLPIDEM TARTRATE
     Dosage: 5 MG, DAILY (1/D)
  18. VITAMINS NOS [Concomitant]
     Active Substance: VITAMINS
     Dosage: 1 D/F, DAILY (1/D)
  19. VITAMIN D [Concomitant]
     Active Substance: CHOLECALCIFEROL
     Dosage: 3000 MG, DAILY (1/D)
  20. VITAMIN C [Concomitant]
     Active Substance: ASCORBIC ACID
     Dosage: 2000 MG, DAILY (1/D)
  21. ALBUTEROL W/IPRATROPIUM [Concomitant]
     Active Substance: ALBUTEROL\IPRATROPIUM
     Dosage: 2.5 MG/0.5 MG AS NEEDED
  22. DURAGESIC [Concomitant]
     Active Substance: FENTANYL
     Dosage: 75 UG, QOD
  23. DIFLUCAN [Concomitant]
     Active Substance: FLUCONAZOLE
     Dosage: 200 MG, AS NEEDED
  24. VITAMIN B COMPLEX                  /00003501/ [Concomitant]
     Dosage: 2000 MG, DAILY (1/D)
  25. PREDNISONE. [Concomitant]
     Active Substance: PREDNISONE
     Dosage: 40 MG, OTHER AS PRESCRIBED

REACTIONS (7)
  - Candida infection [Recovered/Resolved]
  - Influenza [Recovered/Resolved]
  - Lower respiratory tract infection [Recovered/Resolved]
  - Infection [Recovered/Resolved]
  - Asthma [Recovered/Resolved]
  - Oropharyngeal pain [Recovered/Resolved]
  - Abdominal discomfort [Recovered/Resolved]

NARRATIVE: CASE EVENT DATE: 200812
